FAERS Safety Report 7275223-7 (Version None)
Quarter: 2011Q1

REPORT INFORMATION
  Report Type: 
  Country: None (occurrence: None)
  Receive Date: 20110204
  Receipt Date: 20110131
  Transmission Date: 20110831
  Serious: Yes (Life-Threatening, Hospitalization)
  Sender: FDA-Public Use
  Company Number: PHHY2011US01687

PATIENT
  Sex: Male

DRUGS (5)
  1. PREDNISONE [Concomitant]
     Dosage: 40 MG, QD
  2. CIPRO [Concomitant]
     Dosage: 1500 MG, TID
  3. SYMBICORT [Concomitant]
     Dosage: 12 UNK, QD
  4. TOBI [Suspect]
     Indication: BRONCHIECTASIS
     Dosage: 300 MG, BID
     Dates: end: 20110101
  5. ALBUTEROL [Concomitant]

REACTIONS (5)
  - BRONCHIECTASIS [None]
  - ERYTHEMA [None]
  - ASTHMA [None]
  - DYSPNOEA [None]
  - WHEEZING [None]
